FAERS Safety Report 5101149-0 (Version None)
Quarter: 2006Q3

REPORT INFORMATION
  Report Type: 
  Country: None (occurrence: None)
  Receive Date: 20060906
  Receipt Date: 20060808
  Transmission Date: 20061208
  Serious: Yes (Hospitalization)
  Sender: FDA-Public Use
  Company Number: 6024910

PATIENT
  Age: 15 Year
  Sex: Female

DRUGS (2)
  1. METFORMIN (TABLET) (METFORMIN) [Suspect]
     Indication: INTENTIONAL OVERDOSE
     Dosage: 14,5 GM (14,5 GM, 1 D), ORAL
     Route: 048
  2. GLIPIZIDE [Suspect]
     Indication: INTENTIONAL OVERDOSE
     Dosage: 375 MG (375 MG, 1 D) ORAL
     Route: 048

REACTIONS (5)
  - ANXIETY [None]
  - HYPERHIDROSIS [None]
  - HYPOGLYCAEMIA [None]
  - INTENTIONAL OVERDOSE [None]
  - VOMITING [None]
